FAERS Safety Report 12678513 (Version 1)
Quarter: 2016Q3

REPORT INFORMATION
  Report Type: Report from Study
  Country: BR (occurrence: BR)
  Receive Date: 20160823
  Receipt Date: 20160823
  Transmission Date: 20161109
  Serious: Yes (Other)
  Sender: FDA-Public Use
  Company Number: ALCN2016BR005847

PATIENT
  Sex: Female
  Weight: 73 kg

DRUGS (2)
  1. AZORGA [Suspect]
     Active Substance: BRINZOLAMIDE\TIMOLOL MALEATE
     Indication: GLAUCOMA
     Dosage: UNK UNK, BID (BY MORNING AND AT NIGHT,06 YEARS AGO)
     Route: 047
  2. GLAUB [Concomitant]
     Indication: PRODUCT USED FOR UNKNOWN INDICATION
     Dosage: UNK
     Route: 065

REACTIONS (6)
  - Visual acuity reduced [Unknown]
  - Weight increased [Unknown]
  - Product quality issue [Unknown]
  - Vision blurred [Unknown]
  - Hyperthyroidism [Unknown]
  - Weight decreased [Unknown]
